FAERS Safety Report 25588802 (Version 1)
Quarter: 2025Q3

REPORT INFORMATION
  Report Type: Spontaneous
  Country: US (occurrence: US)
  Receive Date: 20250722
  Receipt Date: 20250722
  Transmission Date: 20251020
  Serious: Yes (Other)
  Sender: Haleon PLC
  Company Number: US-HALEON-2253474

PATIENT
  Age: 79 Year
  Sex: Female

DRUGS (1)
  1. PARODONTAX ACTIVE GUM REPAIR BREATH FRESHENER [Suspect]
     Active Substance: STANNOUS FLUORIDE
     Indication: Product used for unknown indication
     Dates: start: 20250613, end: 20250613

REACTIONS (3)
  - Pharyngeal haemorrhage [Recovered/Resolved]
  - Pharyngeal swelling [Recovered/Resolved]
  - Uvulitis [Recovered/Resolved]

NARRATIVE: CASE EVENT DATE: 20250614
